FAERS Safety Report 12396505 (Version 1)
Quarter: 2016Q2

REPORT INFORMATION
  Report Type: Spontaneous
  Country: US (occurrence: None)
  Receive Date: 20160523
  Receipt Date: 20160523
  Transmission Date: 20160815
  Serious: No
  Sender: FDA-Public Use
  Company Number: None

PATIENT
  Age: 9 Year
  Sex: Male

DRUGS (2)
  1. BENADRYL [Concomitant]
     Active Substance: DIPHENHYDRAMINE HYDROCHLORIDE
  2. MEIJER CLEAR ZINC SPF 50 [Suspect]
     Active Substance: OCTOCRYLENE\ZINC OXIDE
     Indication: PROPHYLAXIS AGAINST SOLAR RADIATION
     Dosage: IN THE MORNING   APPLIED TO A SURFACE, USUALLY THE SKIN
     Dates: start: 20160520, end: 20160520

REACTIONS (4)
  - Hypersensitivity [None]
  - Discomfort [None]
  - Application site urticaria [None]
  - Pruritus [None]

NARRATIVE: CASE EVENT DATE: 20160521
